FAERS Safety Report 5957076-X (Version None)
Quarter: 2008Q4

REPORT INFORMATION
  Report Type: 
  Country: None (occurrence: None)
  Receive Date: 20081118
  Receipt Date: 20081110
  Transmission Date: 20090506
  Serious: Yes (Other)
  Sender: FDA-Public Use
  Company Number: PHHY2008DE24996

PATIENT

DRUGS (5)
  1. EXFORGE [Suspect]
     Indication: ESSENTIAL HYPERTENSION
     Dosage: 10/160 MG/DAY
     Dates: start: 20080328, end: 20080623
  2. EXFORGE [Suspect]
     Dosage: 5/160 MG/DAY
     Dates: start: 20080624
  3. BELOC-ZOC COMP [Concomitant]
     Dosage: 95/12.5 MG/DAY
     Dates: end: 20080624
  4. BELOC ZOK [Concomitant]
     Dosage: UNK
     Dates: start: 20080624
  5. FUROSEMIDE [Concomitant]
     Dosage: 80 MG/DAY

REACTIONS (2)
  - BLOOD CREATININE INCREASED [None]
  - RENAL FAILURE [None]
